FAERS Safety Report 7683109-9 (Version None)
Quarter: 2011Q3

REPORT INFORMATION
  Report Type: 
  Country: None (occurrence: None)
  Receive Date: 20110815
  Receipt Date: 20110804
  Transmission Date: 20111222
  Serious: Yes (Hospitalization, Other)
  Sender: FDA-Public Use
  Company Number: AU-JNJFOC-20110710463

PATIENT
  Sex: Female
  Weight: 90 kg

DRUGS (3)
  1. AZATHIOPRINE [Concomitant]
     Route: 065
  2. REMICADE [Suspect]
     Indication: ANKYLOSING SPONDYLITIS
     Route: 042
     Dates: start: 20110714
  3. ACETAMINOPHEN [Concomitant]
     Route: 065

REACTIONS (1)
  - KIDNEY INFECTION [None]
